FAERS Safety Report 9159520 (Version 1)
Quarter: 2013Q1

REPORT INFORMATION
  Report Type: Spontaneous
  Country: US (occurrence: None)
  Receive Date: 20130215
  Receipt Date: 20130215
  Transmission Date: 20140127
  Serious: Yes (Hospitalization)
  Sender: FDA-Public Use
  Company Number: 121658

PATIENT
  Age: 37 Year
  Sex: Female

DRUGS (1)
  1. CERUBIDINE [Suspect]
     Indication: ACUTE MYELOID LEUKAEMIA
     Route: 042
     Dates: start: 20080214, end: 20080216

REACTIONS (2)
  - Osteitis [None]
  - Oral cavity fistula [None]
